FAERS Safety Report 23441307 (Version 1)
Quarter: 2024Q1

REPORT INFORMATION
  Report Type: Spontaneous
  Country: ES (occurrence: ES)
  Receive Date: 20240125
  Receipt Date: 20240125
  Transmission Date: 20240409
  Serious: Yes (Other)
  Sender: FDA-Public Use
  Company Number: ES-CELLTRION INC.-2024ES001494

PATIENT

DRUGS (24)
  1. ADALIMUMAB [Suspect]
     Active Substance: ADALIMUMAB\ISOPROPYL ALCOHOL
     Indication: Inflammatory bowel disease
     Dosage: UNK (ADDITIONAL INFORMATION ON DRUG (FREE TEXT): DOSAGE1: UNIT=NOT AVAILABLE)
     Route: 065
  2. ADALIMUMAB [Suspect]
     Active Substance: ADALIMUMAB\ISOPROPYL ALCOHOL
     Indication: Axial spondyloarthritis
  3. ADALIMUMAB [Suspect]
     Active Substance: ADALIMUMAB\ISOPROPYL ALCOHOL
     Indication: Uveitis
  4. ADALIMUMAB [Suspect]
     Active Substance: ADALIMUMAB\ISOPROPYL ALCOHOL
     Indication: Peripheral spondyloarthritis
  5. INFLIXIMAB [Suspect]
     Active Substance: INFLIXIMAB
     Indication: Peripheral spondyloarthritis
  6. INFLIXIMAB [Suspect]
     Active Substance: INFLIXIMAB
     Indication: Uveitis
  7. INFLIXIMAB [Suspect]
     Active Substance: INFLIXIMAB
     Indication: Inflammatory bowel disease
  8. INFLIXIMAB [Suspect]
     Active Substance: INFLIXIMAB
     Indication: Axial spondyloarthritis
  9. GOLIMUMAB [Concomitant]
     Active Substance: GOLIMUMAB
     Indication: Musculoskeletal disorder
  10. GOLIMUMAB [Concomitant]
     Active Substance: GOLIMUMAB
     Indication: Inflammatory bowel disease
  11. GOLIMUMAB [Concomitant]
     Active Substance: GOLIMUMAB
     Indication: Axial spondyloarthritis
  12. GOLIMUMAB [Concomitant]
     Active Substance: GOLIMUMAB
     Indication: Peripheral spondyloarthritis
  13. CERTOLIZUMAB [Concomitant]
     Active Substance: CERTOLIZUMAB
     Indication: Axial spondyloarthritis
  14. CERTOLIZUMAB [Concomitant]
     Active Substance: CERTOLIZUMAB
     Indication: Peripheral spondyloarthritis
  15. CERTOLIZUMAB [Concomitant]
     Active Substance: CERTOLIZUMAB
     Indication: Uveitis
  16. CERTOLIZUMAB [Concomitant]
     Active Substance: CERTOLIZUMAB
     Indication: Inflammatory bowel disease
  17. USTEKINUMAB [Concomitant]
     Active Substance: USTEKINUMAB
     Indication: Axial spondyloarthritis
  18. USTEKINUMAB [Concomitant]
     Active Substance: USTEKINUMAB
     Indication: Inflammatory bowel disease
  19. USTEKINUMAB [Concomitant]
     Active Substance: USTEKINUMAB
     Indication: Musculoskeletal disorder
  20. USTEKINUMAB [Concomitant]
     Active Substance: USTEKINUMAB
     Indication: Peripheral spondyloarthritis
  21. ETANERCEPT [Concomitant]
     Active Substance: ETANERCEPT
     Indication: Peripheral spondyloarthritis
  22. ETANERCEPT [Concomitant]
     Active Substance: ETANERCEPT
     Indication: Musculoskeletal disorder
  23. ETANERCEPT [Concomitant]
     Active Substance: ETANERCEPT
     Indication: Inflammatory bowel disease
  24. ETANERCEPT [Concomitant]
     Active Substance: ETANERCEPT
     Indication: Axial spondyloarthritis

REACTIONS (3)
  - Peripheral spondyloarthritis [Unknown]
  - Hypersensitivity pneumonitis [Unknown]
  - Axial spondyloarthritis [Unknown]
